FAERS Safety Report 9881813 (Version 1)
Quarter: 2014Q1

REPORT INFORMATION
  Report Type: Spontaneous
  Country: CZ (occurrence: CZ)
  Receive Date: 20140207
  Receipt Date: 20140207
  Transmission Date: 20141002
  Serious: Yes (Life-Threatening, Hospitalization, Other)
  Sender: FDA-Public Use
  Company Number: CZ-PFIZER INC-2014035489

PATIENT
  Age: 39 Year
  Sex: Female

DRUGS (6)
  1. PLATIDIAM 10 [Suspect]
     Indication: CERVIX CARCINOMA
     Dosage: 85 MG, EVERY 3 WEEKS
     Route: 041
     Dates: start: 20140104, end: 20140104
  2. PACLITAXEL KABI 6MG/ML KONCENTRAT PRO PIPRAVU INFUZNIHO ROZTOKU [Suspect]
     Indication: CERVIX CARCINOMA
     Dosage: 230 MG, STRENGHT 6 MG/ML
     Route: 041
     Dates: start: 20140104, end: 20140104
  3. KALIUM CHLORATUM LEIVA [Concomitant]
     Indication: PREMEDICATION
     Dosage: 20 ML (7.5%)
     Route: 041
     Dates: start: 20140104, end: 20140104
  4. GRANISETRON TEVA [Concomitant]
     Indication: PREMEDICATION
     Dosage: 3 MG, STRENGTH: 3 MG/3 ML (CONCENTRATE FOR SOLUTION FOR INJECTION/INFUSION)
     Route: 041
     Dates: start: 20140104, end: 20140104
  5. DEXAMED [Concomitant]
     Indication: PREMEDICATION
     Dosage: 8 MG, UNK
     Route: 041
     Dates: start: 20140104, end: 20140104
  6. RANITAL [Concomitant]
     Indication: PREMEDICATION
     Dosage: 50 MG, STENGHT 50 MG/2ML
     Route: 041
     Dates: start: 20140104, end: 20140104

REACTIONS (2)
  - Pruritus generalised [Recovered/Resolved]
  - Erythema [Recovered/Resolved]
